FAERS Safety Report 8950353 (Version 1)
Quarter: 2012Q4

REPORT INFORMATION
  Report Type: Spontaneous
  Country: US (occurrence: None)
  Receive Date: 20121130
  Receipt Date: 20121130
  Transmission Date: 20130627
  Serious: Yes (Life-Threatening, Hospitalization)
  Sender: FDA-Public Use
  Company Number: None

PATIENT
  Age: 38 Year
  Sex: Female

DRUGS (12)
  1. NITROSTAT [Suspect]
     Indication: CHEST PAIN
     Route: 060
     Dates: start: 20090106, end: 20090106
  2. NITROSTAT [Suspect]
     Indication: ABNORMAL ECG
     Route: 060
     Dates: start: 20090106, end: 20090106
  3. CLARINEX [Concomitant]
  4. CLARINEX [Concomitant]
  5. LEVOXYL [Concomitant]
  6. ACIPHEX [Concomitant]
  7. PHENERGAN [Concomitant]
  8. ACIDOPHILUS [Concomitant]
  9. FLONASE [Concomitant]
  10. NOSTRIL [Concomitant]
  11. ASTELIN [Concomitant]
  12. MUCINEX [Concomitant]

REACTIONS (4)
  - Feeling abnormal [None]
  - Loss of consciousness [None]
  - Cardiac arrest [None]
  - Presyncope [None]
